FAERS Safety Report 22111075 (Version 1)
Quarter: 2023Q1

REPORT INFORMATION
  Report Type: Spontaneous
  Country: HR (occurrence: HR)
  Receive Date: 20230317
  Receipt Date: 20230317
  Transmission Date: 20230418
  Serious: Yes (Other)
  Sender: FDA-Public Use
  Company Number: HR-009507513-2302HRV008798

PATIENT
  Age: 68 Year
  Sex: Male

DRUGS (5)
  1. PEMETREXED [Suspect]
     Active Substance: PEMETREXED
     Indication: Product used for unknown indication
     Dosage: UNK 6 CYCLES
     Route: 065
     Dates: start: 202111, end: 202203
  2. KEYTRUDA [Suspect]
     Active Substance: PEMBROLIZUMAB
     Indication: Product used for unknown indication
     Dosage: UNK 6 CYCLES
     Route: 065
     Dates: start: 202111, end: 202203
  3. KEYTRUDA [Suspect]
     Active Substance: PEMBROLIZUMAB
     Dosage: UNK 15 CYCLES
     Route: 065
     Dates: start: 20221111, end: 20221111
  4. KEYTRUDA [Suspect]
     Active Substance: PEMBROLIZUMAB
     Dosage: UNK (16TH CYCLE AND 17TH CYCLE)
     Route: 065
     Dates: start: 20230113
  5. CISPLATIN [Suspect]
     Active Substance: CISPLATIN
     Indication: Product used for unknown indication
     Dosage: UNK 6 CYCLES
     Route: 065
     Dates: start: 202111, end: 202203

REACTIONS (15)
  - Malignant neoplasm progression [Unknown]
  - Psoriasis [Unknown]
  - Mucosal dryness [Unknown]
  - Neck pain [Unknown]
  - Peripheral swelling [Unknown]
  - Pain in extremity [Unknown]
  - Dry mouth [Unknown]
  - Arthralgia [Unknown]
  - Oedema peripheral [Unknown]
  - Nasal dryness [Unknown]
  - Musculoskeletal stiffness [Unknown]
  - Groin pain [Unknown]
  - Dry eye [Unknown]
  - Joint swelling [Unknown]
  - Wrist deformity [Unknown]

NARRATIVE: CASE EVENT DATE: 20221006
